FAERS Safety Report 19175551 (Version 1)
Quarter: 2021Q2

REPORT INFORMATION
  Report Type: Spontaneous
  Country: US (occurrence: US)
  Receive Date: 20210423
  Receipt Date: 20210423
  Transmission Date: 20210717
  Serious: Yes (Other)
  Sender: FDA-Public Use
  Company Number: US-BAYER-2021-122638

PATIENT
  Age: 43 Year

DRUGS (1)
  1. AFRIN ORIGINAL [Suspect]
     Active Substance: OXYMETAZOLINE HYDROCHLORIDE

REACTIONS (3)
  - Incorrect product administration duration [Unknown]
  - Drug dependence [Unknown]
  - Liver disorder [Unknown]
